FAERS Safety Report 26160576 (Version 1)
Quarter: 2025Q4

REPORT INFORMATION
  Report Type: Spontaneous
  Country: US (occurrence: US)
  Receive Date: 20251216
  Receipt Date: 20251216
  Transmission Date: 20260117
  Serious: No
  Sender: NOVAST LABORATORIES LTD
  Company Number: US-NOVAST LABORATORIES INC.-2025NOV000206

PATIENT

DRUGS (3)
  1. TRIAZOLAM [Suspect]
     Active Substance: TRIAZOLAM
     Indication: Insomnia
     Dosage: UNK, EVERY NIGHT
     Route: 065
  2. HYDROCODONE [Concomitant]
     Active Substance: HYDROCODONE
     Indication: Pain
     Dosage: UNK
     Route: 065
  3. ZINC [Concomitant]
     Active Substance: ZINC
     Indication: Immune enhancement therapy
     Route: 065

REACTIONS (2)
  - Delayed sleep phase [Not Recovered/Not Resolved]
  - Drug ineffective [Unknown]
